FAERS Safety Report 12691143 (Version 1)
Quarter: 2016Q3

REPORT INFORMATION
  Report Type: Spontaneous
  Country: US (occurrence: US)
  Receive Date: 20160826
  Receipt Date: 20160826
  Transmission Date: 20161109
  Serious: Yes (Hospitalization)
  Sender: FDA-Public Use
  Company Number: US-SAOL THERAPEUTICS-2016SAO00486

PATIENT
  Age: 45 Year
  Sex: Female

DRUGS (4)
  1. MORPHINE SULFATE. [Suspect]
     Active Substance: MORPHINE SULFATE
     Dosage: 2.998 MG, \DAY
     Route: 037
     Dates: start: 20160810
  2. BACLOFEN. [Suspect]
     Active Substance: BACLOFEN
     Indication: POST LAMINECTOMY SYNDROME
  3. FENTANYL. [Suspect]
     Active Substance: FENTANYL
     Dosage: 599.6 ?G, \DAY
     Route: 037
     Dates: start: 20160810
  4. BACLOFEN. [Suspect]
     Active Substance: BACLOFEN
     Indication: PAIN
     Dosage: 29.98 ?G, \DAY
     Route: 037
     Dates: start: 20160810

REACTIONS (4)
  - Device battery issue [Recovered/Resolved]
  - Device failure [Recovered/Resolved]
  - Off label use [Not Recovered/Not Resolved]
  - Unresponsive to stimuli [Unknown]

NARRATIVE: CASE EVENT DATE: 20160729
